FAERS Safety Report 16518631 (Version 1)
Quarter: 2019Q3

REPORT INFORMATION
  Report Type: Spontaneous
  Country: US (occurrence: US)
  Receive Date: 20190522
  Receipt Date: 20190522
  Transmission Date: 20191004
  Serious: Yes (Hospitalization)
  Sender: FDA-Public Use
  Company Number: None

PATIENT
  Age: 76 Year
  Sex: Female
  Weight: 63.4 kg

DRUGS (1)
  1. NALOXEGOL OXALATE. [Suspect]
     Active Substance: NALOXEGOL OXALATE
     Dates: end: 20190517

REACTIONS (4)
  - Immunosuppression [None]
  - Culture urine positive [None]
  - Escherichia infection [None]
  - Urinary tract infection [None]

NARRATIVE: CASE EVENT DATE: 20190518
